FAERS Safety Report 7750713-9 (Version None)
Quarter: 2011Q3

REPORT INFORMATION
  Report Type: 
  Country: None (occurrence: None)
  Receive Date: 20110914
  Receipt Date: 20110907
  Transmission Date: 20111222
  Serious: Yes (Other)
  Sender: FDA-Public Use
  Company Number: CA-JNJFOC-20110903114

PATIENT
  Sex: Female

DRUGS (2)
  1. USTEKINUMAB [Suspect]
     Route: 058
     Dates: start: 20091130
  2. USTEKINUMAB [Suspect]
     Indication: PSORIASIS
     Route: 058
     Dates: start: 20110520

REACTIONS (1)
  - CHEST PAIN [None]
